FAERS Safety Report 4656703-7 (Version None)
Quarter: 2005Q2

REPORT INFORMATION
  Report Type: 
  Country: None (occurrence: None)
  Receive Date: 20050506
  Receipt Date: 20050426
  Transmission Date: 20051028
  Serious: Yes (Other)
  Sender: FDA-Public Use
  Company Number: 2005066677

PATIENT
  Age: 36 Year
  Sex: Female

DRUGS (3)
  1. BEXTRA [Suspect]
     Indication: ANALGESIC EFFECT
     Dates: start: 20040401, end: 20050401
  2. GABAPENTIN [Concomitant]
  3. ETORICOXIB [Concomitant]

REACTIONS (1)
  - LUNG DISORDER [None]
